FAERS Safety Report 6124444-5 (Version None)
Quarter: 2009Q1

REPORT INFORMATION
  Report Type: 
  Country: None (occurrence: None)
  Receive Date: 20090317
  Receipt Date: 20090317
  Transmission Date: 20090719
  Serious: Yes (Hospitalization)
  Sender: FDA-Public Use
  Company Number: None

PATIENT
  Age: 42 Year
  Sex: Female
  Weight: 52.1637 kg

DRUGS (1)
  1. CLINDAMYCIN HCL [Suspect]
     Indication: TOOTH INFECTION
     Dosage: 2 PILLS ONCE IN BEGINNING PO 1 PILL EVERY 6 HOURS
     Route: 048
     Dates: start: 20090315, end: 20090317

REACTIONS (9)
  - ANXIETY [None]
  - CHEST PAIN [None]
  - DYSPEPSIA [None]
  - NAUSEA [None]
  - NERVOUSNESS [None]
  - PHARYNGEAL OEDEMA [None]
  - RASH [None]
  - SWELLING FACE [None]
  - SWOLLEN TONGUE [None]
